FAERS Safety Report 6207528-2 (Version None)
Quarter: 2009Q2

REPORT INFORMATION
  Report Type: 
  Country: None (occurrence: None)
  Receive Date: 20090526
  Receipt Date: 20090511
  Transmission Date: 20091009
  Serious: Yes (Other)
  Sender: FDA-Public Use
  Company Number: 2009S1006863

PATIENT
  Age: 19 Month
  Sex: Male
  Weight: 12 kg

DRUGS (1)
  1. DURANIFIN  (NIFEDIPINE)     (20 MG) [Suspect]
     Indication: ACCIDENTAL EXPOSURE
     Dosage: 20 MG;ONCE;ORAL
     Route: 048
     Dates: start: 20090416, end: 20090416

REACTIONS (2)
  - ACCIDENTAL DRUG INTAKE BY CHILD [None]
  - AGITATION [None]
